FAERS Safety Report 6341237-4 (Version None)
Quarter: 2009Q3

REPORT INFORMATION
  Report Type: 
  Country: None (occurrence: None)
  Receive Date: 20090904
  Receipt Date: 20090817
  Transmission Date: 20100115
  Serious: No
  Sender: FDA-Public Use
  Company Number: A0796181A

PATIENT
  Age: 68 Year
  Sex: Male

DRUGS (1)
  1. REQUIP [Suspect]
     Indication: DRUG USE FOR UNKNOWN INDICATION
     Dosage: 3TAB CUMULATIVE DOSE
     Route: 048

REACTIONS (2)
  - MALAISE [None]
  - NONSPECIFIC REACTION [None]
